FAERS Safety Report 14846332 (Version 2)
Quarter: 2018Q2

REPORT INFORMATION
  Report Type: Report from Study
  Country: ES (occurrence: ES)
  Receive Date: 20180504
  Receipt Date: 20180622
  Transmission Date: 20180711
  Serious: Yes (Death, Hospitalization)
  Sender: FDA-Public Use
  Company Number: ES-ROCHE-1524869

PATIENT
  Age: 64 Year
  Sex: Male
  Weight: 81.5 kg

DRUGS (6)
  1. BEVACIZUMAB. [Suspect]
     Active Substance: BEVACIZUMAB
     Indication: COLORECTAL CANCER
     Dosage: LAST DOSE PRIOER TO AE ON : 10/DEC/2014
     Route: 042
     Dates: start: 20141210, end: 20141210
  2. 5-FLUOROURACIL [Suspect]
     Active Substance: FLUOROURACIL
     Indication: COLORECTAL CANCER
     Dosage: LAST DOSE PRIOER TO AE ON : 10/DEC/2014
     Route: 042
     Dates: start: 20141210, end: 20141210
  3. DUTASTERIDE/TAMSULOSIN HYDROCHLORIDE [Concomitant]
     Indication: BENIGN PROSTATIC HYPERPLASIA
     Route: 048
  4. IRINOTECAN [Suspect]
     Active Substance: IRINOTECAN
     Indication: COLORECTAL CANCER
     Dosage: LAST DOSE PRIOER TO AE ON : 10/DEC/2014
     Route: 042
     Dates: start: 20141210, end: 20141210
  5. OXALIPLATIN. [Suspect]
     Active Substance: OXALIPLATIN
     Indication: COLORECTAL CANCER
     Dosage: LAST DOSE PRIOER TO AE ON : 10/DEC/2014
     Route: 042
     Dates: start: 20141210, end: 20141210
  6. LEUCOVORIN. [Suspect]
     Active Substance: LEUCOVORIN
     Indication: COLORECTAL CANCER
     Dosage: LAST DOSE PRIOER TO AE ON : 10/DEC/2014
     Route: 042
     Dates: start: 20141210, end: 20141210

REACTIONS (3)
  - Condition aggravated [Fatal]
  - Febrile neutropenia [Recovered/Resolved]
  - Large intestine perforation [Fatal]

NARRATIVE: CASE EVENT DATE: 20141218
